FAERS Safety Report 4294586-8 (Version None)
Quarter: 2004Q1

REPORT INFORMATION
  Report Type: 
  Country: None (occurrence: None)
  Receive Date: 20040211
  Receipt Date: 20040202
  Transmission Date: 20041129
  Serious: Yes (Other)
  Sender: FDA-Public Use
  Company Number: A-CH2003-03476

PATIENT
  Age: 73 Year
  Sex: Female

DRUGS (4)
  1. TRACLEER [Suspect]
     Indication: PULMONARY HYPERTENSION
     Dosage: 62.5; 125 MG, BID, ORAL
     Route: 048
     Dates: start: 20020522, end: 20020621
  2. TRACLEER [Suspect]
     Indication: PULMONARY HYPERTENSION
     Dosage: 62.5; 125 MG, BID, ORAL
     Route: 048
     Dates: start: 20020622
  3. ENALAPRIL MALEATE [Concomitant]
  4. OMEPRAZOLE [Concomitant]

REACTIONS (1)
  - WEIGHT DECREASED [None]
